FAERS Safety Report 14507585 (Version 9)
Quarter: 2019Q1

REPORT INFORMATION
  Report Type: Spontaneous
  Country: US (occurrence: US)
  Receive Date: 20180208
  Receipt Date: 20190201
  Transmission Date: 20190417
  Serious: Yes (Death, Hospitalization)
  Sender: FDA-Public Use
  Company Number: US-ACTELION-A-US2018-167303

PATIENT
  Age: 57 Year
  Sex: Female
  Weight: 56.69 kg

DRUGS (5)
  1. VELETRI [Suspect]
     Active Substance: EPOPROSTENOL
     Dosage: 40 NG/KG, PER MIN
     Route: 042
  2. VELETRI [Suspect]
     Active Substance: EPOPROSTENOL
     Dosage: 20 NG/KG, PER MIN
     Route: 042
  3. ELIQUIS [Concomitant]
     Active Substance: APIXABAN
  4. VELETRI [Suspect]
     Active Substance: EPOPROSTENOL
     Indication: PULMONARY HYPERTENSION
     Dosage: 45 NG/KG, PER MIN
     Route: 042
  5. OPSUMIT [Suspect]
     Active Substance: MACITENTAN
     Indication: PULMONARY HYPERTENSION
     Dosage: 10 MG, QD
     Route: 048

REACTIONS (13)
  - Pneumothorax [Unknown]
  - Condition aggravated [Unknown]
  - Influenza [Unknown]
  - Flushing [Recovering/Resolving]
  - Trismus [Unknown]
  - Pneumonia [Unknown]
  - Dyspnoea [Unknown]
  - Diarrhoea [Unknown]
  - Cardiogenic shock [Fatal]
  - Fluid overload [Unknown]
  - Lung infection [Unknown]
  - Fluid retention [Unknown]
  - Hospitalisation [Unknown]
